FAERS Safety Report 5939770-X (Version None)
Quarter: 2008Q4

REPORT INFORMATION
  Report Type: 
  Country: None (occurrence: None)
  Receive Date: 20081031
  Receipt Date: 20081031
  Transmission Date: 20090506
  Serious: Yes (Disabling, Other)
  Sender: FDA-Public Use
  Company Number: None

PATIENT
  Age: 52 Year
  Sex: Female
  Weight: 91.173 kg

DRUGS (1)
  1. CYMBALTA [Suspect]
     Indication: DEPRESSION
     Dosage: 30MG IX PO
     Route: 048
     Dates: start: 20060601, end: 20081030

REACTIONS (3)
  - BLOOD PRESSURE INCREASED [None]
  - HEPATIC ENZYME INCREASED [None]
  - WEIGHT INCREASED [None]
